FAERS Safety Report 10664878 (Version 1)
Quarter: 2014Q4

REPORT INFORMATION
  Report Type: Spontaneous
  Country: RU (occurrence: RU)
  Receive Date: 20141219
  Receipt Date: 20141219
  Transmission Date: 20150529
  Serious: Yes (Life-Threatening, Hospitalization, Other)
  Sender: FDA-Public Use
  Company Number: RU-UCBSA-2014021685

PATIENT
  Age: 24 Year
  Sex: Male

DRUGS (4)
  1. LEVETINOL [Suspect]
     Active Substance: LEVETIRACETAM
     Indication: PARTIAL SEIZURES
     Dosage: UNK
     Dates: start: 2014, end: 201407
  2. KEPPRA [Suspect]
     Active Substance: LEVETIRACETAM
     Indication: PARTIAL SEIZURES
     Dosage: 2000 MG DAILY, SEVERAL MONTHS/YEARS
  3. KEPPRA [Suspect]
     Active Substance: LEVETIRACETAM
     Dosage: 1500 MG, 2X/DAY (BID)
     Route: 048
     Dates: start: 201407
  4. TOPAMAX [Concomitant]
     Active Substance: TOPIRAMATE
     Indication: PARTIAL SEIZURES

REACTIONS (2)
  - Status epilepticus [Recovered/Resolved]
  - Apparent life threatening event [None]

NARRATIVE: CASE EVENT DATE: 20141115
